FAERS Safety Report 6782376-3 (Version None)
Quarter: 2010Q2

REPORT INFORMATION
  Report Type: 
  Country: None (occurrence: None)
  Receive Date: 20100621
  Receipt Date: 20100611
  Transmission Date: 20101027
  Serious: Yes (Hospitalization)
  Sender: FDA-Public Use
  Company Number: FR-PFIZER INC-2010073402

PATIENT
  Age: 87 Year
  Sex: Female

DRUGS (4)
  1. TAHOR [Interacting]
     Dosage: 40 MG, 1X/DAY
     Route: 048
     Dates: start: 20070101
  2. PREVISCAN [Suspect]
     Dosage: 0.625 DF, 1X/DAY
     Route: 048
     Dates: start: 20071218, end: 20100515
  3. KARDEGIC [Suspect]
     Dosage: 75 MG, 1X/DAY
     Route: 048
     Dates: start: 20071218
  4. COVERSYL [Suspect]
     Dosage: 1 MG, 1X/DAY
     Route: 048
     Dates: start: 20070101

REACTIONS (1)
  - HAEMATURIA [None]
